FAERS Safety Report 22267583 (Version 1)
Quarter: 2023Q2

REPORT INFORMATION
  Report Type: Report from Study
  Country: IT (occurrence: IT)
  Receive Date: 20230430
  Receipt Date: 20230430
  Transmission Date: 20230722
  Serious: Yes (Hospitalization, Other)
  Sender: FDA-Public Use
  Company Number: IT-AUROBINDO-AUR-APL-2023-032508

PATIENT
  Age: 53 Year
  Sex: Male

DRUGS (6)
  1. DOCETAXEL [Suspect]
     Active Substance: DOCETAXEL
     Indication: Non-small cell lung cancer stage IV
     Dosage: UNK
     Route: 065
  2. NINTEDANIB [Suspect]
     Active Substance: NINTEDANIB
     Indication: Non-small cell lung cancer stage IV
     Dosage: UNK
     Route: 065
  3. ASPIRIN [Concomitant]
     Active Substance: ASPIRIN
     Indication: Cardiac disorder
     Dosage: UNK
     Route: 065
  4. BISOPROLOL [Concomitant]
     Active Substance: BISOPROLOL
     Indication: Cardiac disorder
     Dosage: UNK
     Route: 065
  5. ATORVASTATIN [Concomitant]
     Active Substance: ATORVASTATIN
     Indication: Dyslipidaemia
     Dosage: UNK
     Route: 065
  6. LEVETIRACETAM [Concomitant]
     Active Substance: LEVETIRACETAM
     Indication: Epilepsy
     Dosage: UNK
     Route: 065

REACTIONS (1)
  - Gastrointestinal perforation [Not Recovered/Not Resolved]
